FAERS Safety Report 11858948 (Version 2)
Quarter: 2016Q1

REPORT INFORMATION
  Report Type: Spontaneous
  Country: JP (occurrence: JP)
  Receive Date: 20151222
  Receipt Date: 20160105
  Transmission Date: 20160526
  Serious: Yes (Death)
  Sender: FDA-Public Use
  Company Number: JP-009507513-1512JPN010109

PATIENT
  Sex: Female
  Weight: 33 kg

DRUGS (15)
  1. MICARDIS [Concomitant]
     Active Substance: TELMISARTAN
     Indication: HYPERTENSION
     Dosage: 20 MG, QD
     Route: 048
  2. SPIRONOLACTONE. [Concomitant]
     Active Substance: SPIRONOLACTONE
     Indication: HYPERTENSION
  3. LYRICA [Concomitant]
     Active Substance: PREGABALIN
     Indication: PAIN
     Dosage: 25 MG, BID
     Route: 048
  4. AMLODIPINE [Concomitant]
     Active Substance: AMLODIPINE BESYLATE
     Indication: HYPERTENSION
     Dosage: 2.5 MG, QD
     Route: 048
  5. AMLODIPINE [Concomitant]
     Active Substance: AMLODIPINE BESYLATE
     Indication: CARDIAC FAILURE
  6. LASIX [Concomitant]
     Active Substance: FUROSEMIDE
     Indication: CARDIAC FAILURE
     Dosage: 10 MG, QD
     Route: 048
  7. LASIX [Concomitant]
     Active Substance: FUROSEMIDE
     Indication: HYPERTENSION
  8. SPIRONOLACTONE. [Concomitant]
     Active Substance: SPIRONOLACTONE
     Indication: CARDIAC FAILURE
     Dosage: 12.5 MG, QD
     Route: 048
  9. INTRALIPOS [Concomitant]
     Active Substance: SOYBEAN OIL
     Indication: HYPOPHAGIA
     Dosage: DAILY DOSAGE UNKNOWN, THE DOSES WERE INCREASED OR DECREASED ACCORDING TO THE TUBE FEEDING AMOUNT
     Route: 051
     Dates: start: 20151015, end: 20151214
  10. OTSUKA MV [Concomitant]
     Indication: HYPOPHAGIA
     Dosage: DAILY DOSAGE UNKNOWN, THE DOSES WERE INCREASED OR DECREASED ACCORDING TO THE TUBE FEEDING AMOUNT
     Route: 051
     Dates: start: 20151015, end: 20151214
  11. MEDLENIK [Concomitant]
     Active Substance: CUPRIC SULFATE\FERRIC CHLORIDE\MANGANESE CHLORIDE\POTASSIUM IODIDE\ZINC SULFATE
     Indication: HYPOPHAGIA
     Dosage: DAILY DOSAGE UNKNOWN, THE DOSES WERE INCREASED OR DECREASED ACCORDING TO THE TUBE FEEDING AMOUNT
     Route: 051
     Dates: start: 20151015, end: 20151214
  12. STROMECTOL [Suspect]
     Active Substance: IVERMECTIN
     Indication: ACARODERMATITIS
     Dosage: 12 MG, ONCE
     Route: 048
     Dates: start: 20151205, end: 20151205
  13. BFLUID [Concomitant]
     Active Substance: AMINO ACIDS\DEXTROSE\ELECTROLYTES NOS\VITAMINS
     Indication: HYPOPHAGIA
     Dosage: DAILY DOSAGE UNKNOWN, THE DOSES WERE INCREASED OR DECREASED ACCORDING TO THE TUBE FEEDING AMOUNT
     Route: 051
     Dates: start: 20151015, end: 20151214
  14. MICARDIS [Concomitant]
     Active Substance: TELMISARTAN
     Indication: CARDIAC FAILURE
  15. MECOBALAMIN [Concomitant]
     Active Substance: METHYLCOBALAMIN
     Indication: PAIN
     Dosage: 1 DF, TID
     Route: 048

REACTIONS (5)
  - Liver function test abnormal [Unknown]
  - Brain natriuretic peptide increased [Unknown]
  - Incorrect dose administered [Unknown]
  - Overdose [Unknown]
  - Arrhythmia [Fatal]

NARRATIVE: CASE EVENT DATE: 20151205
